FAERS Safety Report 18233209 (Version 1)
Quarter: 2020Q3

REPORT INFORMATION
  Report Type: Spontaneous
  Country: NL (occurrence: NL)
  Receive Date: 20200904
  Receipt Date: 20200904
  Transmission Date: 20201103
  Serious: Yes (Other)
  Sender: FDA-Public Use
  Company Number: NL-MYLANLABS-2020M1076054

PATIENT
  Sex: Female
  Weight: 50 kg

DRUGS (1)
  1. ETHINYLESTRADIOL/LEVONORGESTREL [Suspect]
     Active Substance: ETHINYL ESTRADIOL\LEVONORGESTREL
     Indication: DYSMENORRHOEA
     Dosage: 1 X PER DAG 1 STUK. MINIMAAL 3 WEKEN ACHTERELKAAR. DAARNA STOPWEEK 30/150UG
     Dates: start: 201705, end: 20190915

REACTIONS (3)
  - Nausea [Recovered/Resolved]
  - Depressed mood [Recovered/Resolved]
  - Suicidal ideation [Unknown]
